FAERS Safety Report 8593732 (Version 4)
Quarter: 2014Q1

REPORT INFORMATION
  Report Type: Spontaneous
  Country: US (occurrence: US)
  Receive Date: 20120604
  Receipt Date: 20140108
  Transmission Date: 20141002
  Serious: Yes (Hospitalization, Disabling)
  Sender: FDA-Public Use
  Company Number: US-ASTRAZENECA-2012SE34852

PATIENT
  Age: 46 Year
  Sex: Female
  Weight: 95.3 kg

DRUGS (23)
  1. NEXIUM [Suspect]
     Route: 048
     Dates: start: 1995, end: 2005
  2. NEXIUM [Suspect]
     Route: 048
     Dates: start: 20050307
  3. PANTOPRAZOLE SODIUM [Concomitant]
  4. TEQUIN [Concomitant]
     Dates: start: 20050307
  5. ZITHROMAX [Concomitant]
     Dates: start: 20050330
  6. ALLEGRA [Concomitant]
     Dates: start: 20050406
  7. PREDNISONE [Concomitant]
     Dates: start: 20050511
  8. PAXIL [Concomitant]
     Dates: start: 20050107
  9. THEOPHYLLINE [Concomitant]
     Dates: start: 20050221
  10. EFFEXOR [Concomitant]
     Dates: start: 20060403
  11. LEVAQUIN [Concomitant]
  12. METHYLPRED [Concomitant]
     Dates: start: 20050307
  13. GLYCOPYRROL [Concomitant]
     Dates: start: 20051020
  14. MECLIZINE [Concomitant]
     Dates: start: 20051020
  15. SONATA [Concomitant]
     Dates: start: 20051021
  16. CLONAZEPAM [Concomitant]
     Dates: start: 20051020
  17. NABUMETONE [Concomitant]
     Dates: start: 20051027
  18. TRAMT/ HCTZ [Concomitant]
     Dosage: 37.5-25
     Dates: start: 20060515
  19. LEVOTHYROID [Concomitant]
     Dosage: 37.5-25
     Dates: start: 20060810
  20. KLOR-CON [Concomitant]
     Dates: start: 20070314
  21. ZYFLO [Concomitant]
     Dates: start: 20070430
  22. DILTIAZEM [Concomitant]
     Dates: start: 20070501
  23. ALPRAZOLAM [Concomitant]
     Dates: start: 20070504

REACTIONS (7)
  - Dyspnoea [Unknown]
  - Back disorder [Unknown]
  - Musculoskeletal discomfort [Unknown]
  - Osteoporosis [Unknown]
  - Multiple fractures [Unknown]
  - Intervertebral disc degeneration [Unknown]
  - Intervertebral disc protrusion [Unknown]
